FAERS Safety Report 14110740 (Version 1)
Quarter: 2017Q4

REPORT INFORMATION
  Report Type: Spontaneous
  Country: US (occurrence: US)
  Receive Date: 20171020
  Receipt Date: 20171020
  Transmission Date: 20180321
  Serious: Yes (Disabling, Other)
  Sender: FDA-Public Use
  Company Number: US-REGENERON PHARMACEUTICALS, INC.-2017-24171

PATIENT

DRUGS (2)
  1. EYLEA [Suspect]
     Active Substance: AFLIBERCEPT
     Indication: AGE-RELATED MACULAR DEGENERATION
     Dosage: 2 MG, 8-9 WEEKS, LEFT EYE
     Route: 031
     Dates: start: 20141021, end: 20170713
  2. EYLEA [Suspect]
     Active Substance: AFLIBERCEPT
     Dosage: 2 MG, 8-9 WEEKS, LAST DOSE, LEFT EYE
     Route: 031
     Dates: start: 20170518, end: 20170518

REACTIONS (5)
  - Eye pain [Recovered/Resolved]
  - Vitreous haze [Recovered/Resolved]
  - Keratic precipitates [Recovered/Resolved]
  - Eye inflammation [Recovered/Resolved]
  - Blindness [Recovered/Resolved]

NARRATIVE: CASE EVENT DATE: 20170608
